FAERS Safety Report 21626925 (Version 1)
Quarter: 2022Q4

REPORT INFORMATION
  Report Type: Spontaneous
  Country: PL (occurrence: PL)
  Receive Date: 20221122
  Receipt Date: 20221122
  Transmission Date: 20230112
  Serious: Yes (Death, Hospitalization)
  Sender: FDA-Public Use
  Company Number: PL-STRIDES ARCOLAB LIMITED-2022SP015463

PATIENT
  Age: 76 Year
  Sex: Female

DRUGS (1)
  1. METHOTREXATE [Suspect]
     Active Substance: METHOTREXATE
     Indication: Product used for unknown indication
     Dosage: 2.5 MILLIGRAM, BID (PRESCRIBED DOSAGE 15 MG PER WEEK; HOWEVER, THE ACCUMULATED DOSE 55 MG (TABLET))
     Route: 065

REACTIONS (14)
  - Pancytopenia [Fatal]
  - Haemorrhage [Fatal]
  - Traumatic haemothorax [Fatal]
  - Cardiac arrest [Fatal]
  - Accidental overdose [Fatal]
  - Incorrect dosage administered [Fatal]
  - Respiratory failure [Fatal]
  - Pneumonia [Fatal]
  - Skin necrosis [Fatal]
  - Sepsis [Fatal]
  - Enterococcal infection [Fatal]
  - Stenotrophomonas infection [Fatal]
  - Aspergillus infection [Fatal]
  - Toxicity to various agents [Fatal]
